APPROVED DRUG PRODUCT: LISINOPRIL
Active Ingredient: LISINOPRIL
Strength: 20MG
Dosage Form/Route: TABLET;ORAL
Application: A208920 | Product #001 | TE Code: AB
Applicant: SCIEGEN PHARMACEUTICALS INC
Approved: Mar 4, 2021 | RLD: No | RS: No | Type: RX